FAERS Safety Report 11104437 (Version 1)
Quarter: 2015Q2

REPORT INFORMATION
  Report Type: Spontaneous
  Country: US (occurrence: US)
  Receive Date: 20150511
  Receipt Date: 20150511
  Transmission Date: 20150821
  Serious: Yes (Disabling)
  Sender: FDA-Public Use
  Company Number: US-JNJFOC-20150501041

PATIENT
  Age: 9 Year
  Sex: Female
  Weight: 60 kg

DRUGS (2)
  1. ONFI [Concomitant]
     Active Substance: CLOBAZAM
     Indication: SEIZURE
     Dosage: ONE AND HALF AT BED TIME
     Route: 048
     Dates: start: 2012
  2. RISPERDAL [Suspect]
     Active Substance: RISPERIDONE
     Indication: ABNORMAL BEHAVIOUR
     Route: 048
     Dates: start: 201408, end: 201410

REACTIONS (2)
  - Abasia [Not Recovered/Not Resolved]
  - Weight bearing difficulty [Not Recovered/Not Resolved]

NARRATIVE: CASE EVENT DATE: 201408
